FAERS Safety Report 5856348-7 (Version None)
Quarter: 2008Q3

REPORT INFORMATION
  Report Type: 
  Country: None (occurrence: None)
  Receive Date: 20080825
  Receipt Date: 20080818
  Transmission Date: 20090109
  Serious: Yes (Other)
  Sender: FDA-Public Use
  Company Number: US-TEVA-176089USA

PATIENT
  Age: 50 Year
  Sex: Female

DRUGS (2)
  1. RIBAVIRIN [Suspect]
     Indication: HEPATITIS C VIRUS TEST
  2. PEGINTERFERON ALFA-2A [Suspect]
     Indication: HEPATITIS C VIRUS TEST

REACTIONS (1)
  - MYOPATHY [None]
